FAERS Safety Report 7607917-5 (Version None)
Quarter: 2011Q3

REPORT INFORMATION
  Report Type: 
  Country: None (occurrence: None)
  Receive Date: 20110714
  Receipt Date: 20091120
  Transmission Date: 20111222
  Serious: Yes (Disabling, Other)
  Sender: FDA-Public Use
  Company Number: US-BAYER-200940977NA

PATIENT
  Age: 60 Year
  Sex: Male
  Weight: 73 kg

DRUGS (30)
  1. IMURAN [Concomitant]
     Indication: IMMUNOSUPPRESSION
     Dosage: 50 MG, BID
  2. FORTAZ [Concomitant]
  3. VALIUM [Concomitant]
  4. DESMOPRESSIN [Concomitant]
     Dosage: 32 MCG
     Route: 042
     Dates: start: 20010828
  5. PAPAVERINE [Concomitant]
     Dosage: 33 MG, UNK
     Dates: start: 20010828
  6. RED BLOOD CELLS [Concomitant]
     Dosage: 2 U, UNK
     Route: 042
     Dates: start: 20010828, end: 20010828
  7. LEVAQUIN [Concomitant]
     Indication: PREOPERATIVE CARE
     Dosage: 500 MG, UNK
     Dates: start: 20010802
  8. DEMADEX [Concomitant]
  9. PLATELETS [Concomitant]
     Dosage: 12 U, UNK
     Route: 042
     Dates: start: 20010828, end: 20010828
  10. SODIUM BICARBONATE [Concomitant]
  11. LIDOCAINE [Concomitant]
     Dosage: 2%
     Route: 058
  12. HEPARIN [Concomitant]
     Dosage: 22000 U, UNK
     Dates: start: 20010828
  13. IMDUR [Concomitant]
  14. POLYMYCIN B SULFATE [Concomitant]
     Dosage: 500000 U, UNK
     Dates: start: 20010828
  15. FOLIC ACID [Concomitant]
  16. PROTAMINE SULFATE [Concomitant]
     Dosage: 250 MG, UNK
     Route: 042
     Dates: start: 20010828
  17. AMICAR [Concomitant]
     Dosage: 5 G, UNK
     Route: 042
     Dates: start: 20010828
  18. VECURONIUM BROMIDE [Concomitant]
     Dosage: UNK
     Dates: start: 20010828
  19. LOPRESSOR [Concomitant]
  20. PROPOFOL [Concomitant]
     Dosage: 50 MG, UNK
     Route: 042
  21. ANCEF [Concomitant]
     Dosage: 1 G, UNK
     Route: 042
     Dates: start: 20010828
  22. PREDNISONE [Concomitant]
     Indication: IMMUNOSUPPRESSION
     Dosage: 20 MG, QOD
  23. AMPICILLIN SODIUM [Concomitant]
  24. PROTONIX [Concomitant]
     Dosage: 40 MG, BID
  25. PEPCID [Concomitant]
     Dosage: 20 MG, BID
  26. EPOGEN [Concomitant]
  27. TRASYLOL [Suspect]
     Indication: PRODUCT USED FOR UNKNOWN INDICATION
     Dosage: UNK
     Dates: start: 20010828
  28. NORVASC [Concomitant]
  29. NUBAIN [Concomitant]
  30. VERSED [Concomitant]
     Dosage: UNK
     Route: 042
     Dates: start: 20010828

REACTIONS (11)
  - RENAL FAILURE [None]
  - DISABILITY [None]
  - ANXIETY [None]
  - INJURY [None]
  - UNEVALUABLE EVENT [None]
  - DEPRESSION [None]
  - MULTI-ORGAN FAILURE [None]
  - ANHEDONIA [None]
  - FEAR [None]
  - RENAL INJURY [None]
  - PAIN [None]
